FAERS Safety Report 25691716 (Version 2)
Quarter: 2025Q4

REPORT INFORMATION
  Report Type: Spontaneous
  Country: EU (occurrence: EU)
  Receive Date: 20250818
  Receipt Date: 20251012
  Transmission Date: 20260117
  Serious: Yes (Other)
  Sender: SANOFI AVENTIS
  Company Number: None

PATIENT
  Age: 65 Year
  Sex: Male

DRUGS (1)
  1. DUPIXENT [Suspect]
     Active Substance: DUPILUMAB
     Indication: Nasal polyps
     Dosage: 300 MG, QOW
     Dates: start: 202503, end: 202504

REACTIONS (2)
  - Eosinophilic pneumonia [Recovering/Resolving]
  - Eosinophilia [Recovering/Resolving]

NARRATIVE: CASE EVENT DATE: 20250401
